FAERS Safety Report 4647071-5 (Version None)
Quarter: 2005Q2

REPORT INFORMATION
  Report Type: 
  Country: None (occurrence: None)
  Receive Date: 20050331
  Receipt Date: 20050128
  Transmission Date: 20051028
  Serious: No
  Sender: FDA-Public Use
  Company Number: 05P-163-0288749-00

PATIENT
  Age: 48 Year
  Sex: Female
  Weight: 64.8644 kg

DRUGS (5)
  1. HUMIRA [Suspect]
     Indication: RHEUMATOID ARTHRITIS
     Dosage: 40 MG, 1 IN 2 WK, SUBCUTANEOUS
     Route: 058
     Dates: start: 20030601
  2. METHOTREXATE SODIUM [Concomitant]
  3. FOLIC ACID [Concomitant]
  4. DARVOCET [Concomitant]
  5. FOLINIC ACID [Concomitant]

REACTIONS (3)
  - FUNGAL INFECTION [None]
  - MYALGIA [None]
  - SINUS HEADACHE [None]
